FAERS Safety Report 16062958 (Version 2)
Quarter: 2019Q1

REPORT INFORMATION
  Report Type: Report from Study
  Country: GB (occurrence: GB)
  Receive Date: 20190312
  Receipt Date: 20190318
  Transmission Date: 20190418
  Serious: Yes (Hospitalization)
  Sender: FDA-Public Use
  Company Number: GB-ROCHE-2278283

PATIENT
  Age: 75 Year
  Sex: Male
  Weight: 75 kg

DRUGS (10)
  1. COCODAMOL [Concomitant]
     Active Substance: ACETAMINOPHEN\CODEINE PHOSPHATE
     Indication: MUSCULOSKELETAL PAIN
     Dosage: 30/500
     Route: 065
  2. EDOXABAN [Concomitant]
     Active Substance: EDOXABAN TOSYLATE
  3. ATEZOLIZUMAB. [Suspect]
     Active Substance: ATEZOLIZUMAB
     Indication: NEOPLASM
     Dosage: MOST RECENT DOSE ON 27/FEB/2019
     Route: 042
     Dates: start: 20190213
  4. COBIMETINIB. [Suspect]
     Active Substance: COBIMETINIB
     Indication: NEOPLASM
     Dosage: MOST RECENT DOSE ON 02/MAR/2019
     Route: 048
     Dates: start: 20190213
  5. OMEPRAZOLE. [Concomitant]
     Active Substance: OMEPRAZOLE
     Indication: DYSPEPSIA
  6. TAMSULOSIN [Concomitant]
     Active Substance: TAMSULOSIN
  7. TINZAPARIN [Concomitant]
     Active Substance: TINZAPARIN
     Route: 065
     Dates: start: 20190122
  8. MOMETASONE FUROATE. [Concomitant]
     Active Substance: MOMETASONE FUROATE
     Indication: PRURITUS
     Route: 065
     Dates: start: 20190123
  9. LOPERAMIDE [Concomitant]
     Active Substance: LOPERAMIDE
     Indication: DIARRHOEA
     Route: 065
     Dates: start: 20190219
  10. CHLORPHENAMINE [Concomitant]
     Active Substance: CHLORPHENIRAMINE MALEATE
     Indication: SEASONAL ALLERGY

REACTIONS (1)
  - Urinary retention [Recovered/Resolved]

NARRATIVE: CASE EVENT DATE: 20190302
